FAERS Safety Report 7306113-9 (Version None)
Quarter: 2011Q1

REPORT INFORMATION
  Report Type: 
  Country: None (occurrence: None)
  Receive Date: 20110210
  Receipt Date: 20110125
  Transmission Date: 20110831
  Serious: Yes (Life-Threatening, Hospitalization, Other)
  Sender: FDA-Public Use
  Company Number: DSA_44887_2011

PATIENT
  Age: 29 Year
  Sex: Female

DRUGS (3)
  1. QUETIAPINE FUMARATE [Suspect]
     Indication: PRODUCT USED FOR UNKNOWN INDICATION
     Dosage: 25 MG 1X, NOT PRESCRIBED AMOUNT ORAL
     Route: 048
     Dates: start: 20110122
  2. CLONAZEPAM [Suspect]
     Indication: PRODUCT USED FOR UNKNOWN INDICATION
     Dosage: 6 MG 1X, NOT PRESCRIBED AMOUNT ORAL
     Route: 048
     Dates: start: 20110102
  3. WELLBUTRIN [Suspect]
     Indication: PRODUCT USED FOR UNKNOWN INDICATION
     Dosage: 4200 MG 1X, NOT THE PRESCRIBED AMOUNT ORAL
     Route: 048
     Dates: start: 20110122

REACTIONS (10)
  - MULTIPLE DRUG OVERDOSE [None]
  - LOSS OF CONSCIOUSNESS [None]
  - TACHYCARDIA [None]
  - HALLUCINATION [None]
  - CONVULSION [None]
  - PARADOXICAL DRUG REACTION [None]
  - CONFUSIONAL STATE [None]
  - HYPERTHERMIA [None]
  - ACCIDENTAL EXPOSURE [None]
  - DELUSION [None]
